FAERS Safety Report 9292024 (Version 2)
Quarter: 2013Q3

REPORT INFORMATION
  Report Type: Spontaneous
  Country: US (occurrence: US)
  Receive Date: 20130516
  Receipt Date: 20130717
  Transmission Date: 20140515
  Serious: Yes (Other)
  Sender: FDA-Public Use
  Company Number: US-PFIZER INC-2013149536

PATIENT
  Age: 70 Year
  Sex: Female

DRUGS (5)
  1. XALKORI [Suspect]
     Dosage: 250 MG, 2X/DAY (TAKE 1 CAPSULE)
     Route: 048
  2. LIPITOR [Concomitant]
     Dosage: 40 MG, UNK
  3. NIASPAN ER [Concomitant]
     Dosage: 500 MG, UNK
  4. METOPROLOL TARTRATE [Concomitant]
     Dosage: 50 MG, UNK
  5. VAGIFEM [Concomitant]
     Dosage: 10 UG, UNK

REACTIONS (1)
  - Pulmonary thrombosis [Unknown]
